FAERS Safety Report 6738138-6 (Version None)
Quarter: 2010Q2

REPORT INFORMATION
  Report Type: 
  Country: None (occurrence: None)
  Receive Date: 20100524
  Receipt Date: 20100517
  Transmission Date: 20101027
  Serious: Yes (Other)
  Sender: FDA-Public Use
  Company Number: B0656710A

PATIENT
  Sex: Female

DRUGS (2)
  1. ALLI [Suspect]
     Dosage: 1CAP TWICE PER DAY
     Route: 048
  2. XENICAL [Concomitant]

REACTIONS (1)
  - HAEMATOCHEZIA [None]
